FAERS Safety Report 24989982 (Version 2)
Quarter: 2025Q3

REPORT INFORMATION
  Report Type: Report from Study
  Country: US (occurrence: US)
  Receive Date: 20250220
  Receipt Date: 20250809
  Transmission Date: 20251021
  Serious: Yes (Hospitalization, Other)
  Sender: ALEXION PHARMACEUTICALS
  Company Number: US-AstraZeneca-CH-00806769A

PATIENT
  Age: 73 Year
  Sex: Female
  Weight: 48 kg

DRUGS (1)
  1. CAPIVASERTIB [Suspect]
     Active Substance: CAPIVASERTIB
     Dosage: 320 MILLIGRAM, BID
     Dates: start: 20250101

REACTIONS (1)
  - Cerebrovascular accident [Unknown]
